FAERS Safety Report 7677578-8 (Version None)
Quarter: 2011Q3

REPORT INFORMATION
  Report Type: 
  Country: None (occurrence: None)
  Receive Date: 20110811
  Receipt Date: 20110811
  Transmission Date: 20111222
  Serious: Yes (Other)
  Sender: FDA-Public Use
  Company Number: None

PATIENT
  Age: 6 Month
  Sex: Female
  Weight: 9.0718 kg

DRUGS (1)
  1. CETIRIZINE [Suspect]
     Indication: SEASONAL ALLERGY
     Dosage: 2.5ML
     Route: 048
     Dates: start: 20110808, end: 20110809

REACTIONS (4)
  - APNOEA [None]
  - SOMNOLENCE [None]
  - LETHARGY [None]
  - DYSPNOEA [None]
